FAERS Safety Report 5227086-9 (Version None)
Quarter: 2007Q1

REPORT INFORMATION
  Report Type: 
  Country: None (occurrence: None)
  Receive Date: 20070130
  Receipt Date: 20070116
  Transmission Date: 20070707
  Serious: Yes (Other)
  Sender: FDA-Public Use
  Company Number: 2007304406

PATIENT
  Sex: Male

DRUGS (1)
  1. LISTERINE (MENTHOL, METHYL SALICYLATE, EUCALYPTOL, THYMOL) [Suspect]
     Indication: MOUTH PLAQUE
     Dosage: ORAL
     Route: 048

REACTIONS (1)
  - INCORRECT ROUTE OF DRUG ADMINISTRATION [None]
